FAERS Safety Report 8329725 (Version 5)
Quarter: 2012Q4

REPORT INFORMATION
  Report Type: 
  Country: US (occurrence: US)
  Receive Date: 20120110
  Receipt Date: 20121031
  Transmission Date: 20130627
  Serious: Yes (Hospitalization)
  Sender: FDA-Public Use
  Company Number: US-MPIJNJ-2012-00015

PATIENT
  Age: 73 Year
  Sex: Male
  Weight: 85.99 kg

DRUGS (10)
  1. VELCADE [Suspect]
     Indication: MULTIPLE MYELOMA
     Dosage: 1.3 mg/m2, 1/week
     Route: 042
     Dates: start: 20110418, end: 20110620
  2. MELPHALAN [Suspect]
     Indication: MULTIPLE MYELOMA
     Dosage: 12 mg, Cyclic
     Route: 048
     Dates: start: 20110418
  3. PREDNISOLONE [Suspect]
     Indication: MULTIPLE MYELOMA
     Dosage: 100 mg, Cyclic
     Route: 048
     Dates: start: 20110418, end: 20110620
  4. NORVASC [Concomitant]
     Indication: PRODUCT USED FOR UNKNOWN INDICATION
     Dosage: 10 mg, qd
  5. TOPROL-XL                          /00376903/ [Concomitant]
     Indication: PRODUCT USED FOR UNKNOWN INDICATION
     Dosage: 100 mg, qd
  6. AMBIEN [Concomitant]
     Indication: PRODUCT USED FOR UNKNOWN INDICATION
     Dosage: 10 mg, prn
  7. FLOMAX                             /00889901/ [Concomitant]
     Indication: PRODUCT USED FOR UNKNOWN INDICATION
     Dosage: 0.4 mg, qd
  8. RENVELA [Concomitant]
     Indication: PRODUCT USED FOR UNKNOWN INDICATION
     Dosage: 800 mg, tid
  9. ACYCLOVIR                          /00587301/ [Concomitant]
     Indication: PRODUCT USED FOR UNKNOWN INDICATION
     Dosage: 400 mg, qd
  10. ZOCOR [Concomitant]
     Indication: PRODUCT USED FOR UNKNOWN INDICATION
     Dosage: 20 mg, qd

REACTIONS (3)
  - Fluid overload [Recovered/Resolved]
  - Non-cardiac chest pain [Not Recovered/Not Resolved]
  - Dyspnoea [Not Recovered/Not Resolved]
